FAERS Safety Report 4661004-7 (Version None)
Quarter: 2005Q2

REPORT INFORMATION
  Report Type: 
  Country: None (occurrence: None)
  Receive Date: 20050511
  Receipt Date: 20050427
  Transmission Date: 20051028
  Serious: Yes (Hospitalization)
  Sender: FDA-Public Use
  Company Number: 2005BI006603

PATIENT
  Age: 35 Year
  Sex: Female
  Weight: 95.2554 kg

DRUGS (4)
  1. AVONEX LIQUID [Suspect]
     Indication: MULTIPLE SCLEROSIS
     Dosage: 30 UG; QW; IM
     Route: 030
     Dates: start: 20031001
  2. ALEVE [Concomitant]
  3. NEURONTIN [Concomitant]
  4. ULTRACET [Concomitant]

REACTIONS (2)
  - CONDITION AGGRAVATED [None]
  - INTERVERTEBRAL DISC PROTRUSION [None]
